FAERS Safety Report 9205742 (Version 1)
Quarter: 2013Q2

REPORT INFORMATION
  Report Type: Spontaneous
  Country: IE (occurrence: IE)
  Receive Date: 20130403
  Receipt Date: 20130403
  Transmission Date: 20140414
  Serious: Yes (Hospitalization)
  Sender: FDA-Public Use
  Company Number: IE-SHIRE-ALL1-2013-01996

PATIENT
  Age: 90 Year
  Sex: Female

DRUGS (7)
  1. XAGRID [Suspect]
     Indication: PLATELET DISORDER
     Dosage: 1 MG, 2X/DAY:BID
     Route: 048
     Dates: start: 201303, end: 20130324
  2. XAGRID [Suspect]
     Dosage: 0.5 MG, 2X/DAY:BID
     Route: 048
     Dates: start: 20130221, end: 201303
  3. NEXIUM [Suspect]
     Indication: PRODUCT USED FOR UNKNOWN INDICATION
     Dosage: UNK, UNKNOWN
     Route: 065
  4. OTHER CARDIAC PREPARATIONS [Concomitant]
     Indication: PRODUCT USED FOR UNKNOWN INDICATION
     Dosage: UNK, UNKNOWN
     Route: 065
  5. DIPYRIDAMOLE [Concomitant]
     Indication: PRODUCT USED FOR UNKNOWN INDICATION
     Dosage: UNK, UNKNOWN
     Route: 065
  6. ASPIRIN [Concomitant]
     Indication: PRODUCT USED FOR UNKNOWN INDICATION
     Dosage: UNK, UNKNOWN
     Route: 065
  7. PIRITON [Concomitant]
     Indication: PRODUCT USED FOR UNKNOWN INDICATION
     Dosage: UNK, UNKNOWN
     Route: 065

REACTIONS (4)
  - Fall [Unknown]
  - Contusion [Unknown]
  - Drug interaction [Unknown]
  - Haemorrhage [Unknown]
